FAERS Safety Report 4650367-4 (Version None)
Quarter: 2005Q2

REPORT INFORMATION
  Report Type: 
  Country: None (occurrence: None)
  Receive Date: 20050429
  Receipt Date: 20050427
  Transmission Date: 20051028
  Serious: Yes (Life-Threatening)
  Sender: FDA-Public Use
  Company Number: 2005AP01824

PATIENT
  Age: 70 Year
  Sex: Female

DRUGS (6)
  1. IRESSA [Suspect]
     Indication: LUNG ADENOCARCINOMA
     Dosage: 250 MG DAILY PO
     Route: 048
     Dates: start: 20050210, end: 20050314
  2. IRESSA [Suspect]
     Indication: LUNG ADENOCARCINOMA
     Dosage: 250 MG DAILY PO
     Route: 048
     Dates: start: 20050406
  3. ATOMIN [Concomitant]
  4. MUCOSAL [Concomitant]
  5. DOGMATYL [Concomitant]
  6. RINDERON [Concomitant]

REACTIONS (9)
  - ASTHENIA [None]
  - BLOOD PH DECREASED [None]
  - CLONIC CONVULSION [None]
  - COMA [None]
  - COMPLEX PARTIAL SEIZURES [None]
  - METASTASES TO CENTRAL NERVOUS SYSTEM [None]
  - NYSTAGMUS [None]
  - PCO2 DECREASED [None]
  - PO2 DECREASED [None]
